FAERS Safety Report 7031924-7 (Version None)
Quarter: 2010Q4

REPORT INFORMATION
  Report Type: 
  Country: None (occurrence: None)
  Receive Date: 20101001
  Receipt Date: 20100917
  Transmission Date: 20110411
  Serious: Yes (Life-Threatening, Hospitalization)
  Sender: FDA-Public Use
  Company Number: 1000016378

PATIENT
  Age: 32 Year
  Sex: Male
  Weight: 66.3 kg

DRUGS (2)
  1. CITALOPRAM HYDROBROMIDE [Suspect]
     Indication: DEPRESSION
     Dosage: 20 MG (20 MG, 1 IN 1 D), ORAL
     Route: 048
  2. ESCITALOPRAM OXALATE [Suspect]
     Indication: DEPRESSION
     Dosage: 20 MG (20 MG, 1 IN 1 D), ORAL, (1400 MG, ONCE), ORAL
     Route: 048
     Dates: start: 20100906

REACTIONS (3)
  - BLOOD CREATINE INCREASED [None]
  - OVERDOSE [None]
  - RHABDOMYOLYSIS [None]
